FAERS Safety Report 16162575 (Version 2)
Quarter: 2019Q2

REPORT INFORMATION
  Report Type: Report from Study
  Country: US (occurrence: US)
  Receive Date: 20190405
  Receipt Date: 20190419
  Transmission Date: 20190711
  Serious: Yes (Death, Life-Threatening, Hospitalization, Other)
  Sender: FDA-Public Use
  Company Number: US-BRISTOL-MYERS SQUIBB COMPANY-BMS-2018-106691

PATIENT
  Age: 78 Year
  Sex: Male
  Weight: 72.9 kg

DRUGS (21)
  1. DOCUSATE [Concomitant]
     Active Substance: DOCUSATE
     Indication: CONSTIPATION
     Dosage: 100 MILLIGRAM, BID
     Route: 048
     Dates: start: 2012
  2. LOSARTAN. [Concomitant]
     Active Substance: LOSARTAN
     Indication: HYPERTENSION
     Dosage: 50 MILLIGRAM, QD
     Route: 048
     Dates: start: 2011
  3. CETIRIZINE [Concomitant]
     Active Substance: CETIRIZINE HYDROCHLORIDE
     Indication: SEASONAL ALLERGY
     Dosage: 10 MILLIGRAM, QD
     Route: 048
     Dates: start: 2011
  4. CEFUROXIME AXETIL. [Concomitant]
     Active Substance: CEFUROXIME AXETIL
     Indication: PRODUCT USED FOR UNKNOWN INDICATION
     Dosage: 250 MILLIGRAM, BID
     Route: 048
     Dates: start: 20180719
  5. HF10 [Suspect]
     Active Substance: CANERPATUREV
     Indication: METASTATIC MALIGNANT MELANOMA
     Dosage: 4 ML, Q2WK
     Route: 036
     Dates: start: 20180221
  6. NEPHRO-VITE                        /01801401/ [Concomitant]
     Indication: CHRONIC KIDNEY DISEASE
     Dosage: 1 TAB, QD
     Route: 048
     Dates: start: 2008
  7. METOPROLOL SUCCINATE. [Concomitant]
     Active Substance: METOPROLOL SUCCINATE
     Indication: HYPERTENSION
     Dosage: 100 MILLIGRAM, BID
     Route: 048
     Dates: start: 20180719
  8. MIRALAX [Concomitant]
     Active Substance: POLYETHYLENE GLYCOL 3350
     Indication: CONSTIPATION
     Dosage: 1 DOSAGE FORM, BID
     Route: 048
     Dates: start: 2012
  9. SPIRONOLACTONE. [Concomitant]
     Active Substance: SPIRONOLACTONE
     Indication: HYPERTENSION
     Dosage: 25 MILLIGRAM, QD
     Route: 048
     Dates: start: 2012
  10. ATORVASTATIN CALCIUM. [Concomitant]
     Active Substance: ATORVASTATIN CALCIUM
     Indication: HYPERTENSION
     Dosage: 80 MILLIGRAM, QD
     Route: 048
     Dates: start: 2012
  11. NITROGLYCERIN. [Concomitant]
     Active Substance: NITROGLYCERIN
     Indication: CHEST PAIN
     Dosage: 2.5 MILLIGRAM, PRN
     Route: 048
  12. CLOPIDOGREL [Concomitant]
     Active Substance: CLOPIDOGREL BISULFATE
     Indication: THROMBOSIS
     Dosage: 75 MILLIGRAM, QD
     Route: 048
     Dates: start: 2015
  13. HYDROCODONE [Concomitant]
     Active Substance: HYDROCODONE
     Indication: PAIN
     Dosage: 5 MILLIGRAM, PRN
     Route: 048
     Dates: start: 2012
  14. METFORMIN [Concomitant]
     Active Substance: METFORMIN HYDROCHLORIDE
     Indication: TYPE 2 DIABETES MELLITUS
     Dosage: 500 MILLIGRAM, QD
     Route: 048
     Dates: start: 2008
  15. OMEPRAZOLE. [Concomitant]
     Active Substance: OMEPRAZOLE
     Indication: GASTROOESOPHAGEAL REFLUX DISEASE
     Dosage: 20 MILLIGRAM, QD
     Route: 048
     Dates: start: 2006
  16. FLONASE                            /00908302/ [Concomitant]
     Active Substance: MOMETASONE FUROATE
     Indication: SEASONAL ALLERGY
     Dosage: 1 DOSAGE FORM, QD
     Route: 048
     Dates: start: 2014
  17. NIVOLUMAB [Suspect]
     Active Substance: NIVOLUMAB
     Indication: METASTATIC MALIGNANT MELANOMA
     Dosage: 480 MG, Q4WK
     Route: 042
     Dates: start: 20180221
  18. LASIX [Concomitant]
     Active Substance: FUROSEMIDE
     Indication: HYPERTENSION
     Dosage: 40 MILLIGRAM, QD
     Route: 048
     Dates: start: 2011
  19. PROVENTIL HFA [Concomitant]
     Active Substance: ALBUTEROL SULFATE
     Indication: ASTHMA
     Dosage: 90 MICROGRAM, PRN
     Dates: start: 2014
  20. ASPIRIN                            /00002701/ [Concomitant]
     Active Substance: ASPIRIN
     Indication: PRODUCT USED FOR UNKNOWN INDICATION
     Dosage: 81 MILLIGRAM, QD
     Route: 048
     Dates: start: 2012
  21. TYLENOL [Concomitant]
     Active Substance: ACETAMINOPHEN
     Indication: PAIN
     Dosage: 325 MILLIGRAM, PRN
     Route: 048

REACTIONS (6)
  - Oesophagitis [Fatal]
  - Anaemia [Recovering/Resolving]
  - Respiratory failure [Fatal]
  - Sepsis [Fatal]
  - Thrombocytopenia [Fatal]
  - Dyspnoea [Unknown]

NARRATIVE: CASE EVENT DATE: 20181107
